FAERS Safety Report 24571966 (Version 1)
Quarter: 2024Q4

REPORT INFORMATION
  Report Type: Spontaneous
  Country: US (occurrence: None)
  Receive Date: 20241031
  Receipt Date: 20241031
  Transmission Date: 20250114
  Serious: Yes (unspecified)
  Sender: Public
  Company Number: None

PATIENT
  Age: 78 Year
  Sex: Male

DRUGS (1)
  1. BUPRENORPHINE [Suspect]
     Active Substance: BUPRENORPHINE
     Indication: Pain
     Dates: start: 20240613, end: 20240614

REACTIONS (6)
  - Confusional state [None]
  - Overdose [None]
  - Chest pain [None]
  - Mental status changes [None]
  - Somnolence [None]
  - Sedation complication [None]

NARRATIVE: CASE EVENT DATE: 20240614
